FAERS Safety Report 5766470-1 (Version None)
Quarter: 2008Q2

REPORT INFORMATION
  Report Type: 
  Country: None (occurrence: None)
  Receive Date: 20080606
  Receipt Date: 20080527
  Transmission Date: 20081010
  Serious: Yes (Death)
  Sender: FDA-Public Use
  Company Number: 151-21880-08021467

PATIENT
  Age: 71 Year
  Sex: Male
  Weight: 72.1 kg

DRUGS (11)
  1. REVLIMID [Suspect]
     Indication: MULTIPLE MYELOMA
     Dosage: 25 MG, ORAL; 15 MG, DAILY, ORAL; 10 MG, ORAL; 15 MG, ORAL
     Route: 048
     Dates: start: 20071204, end: 20071221
  2. REVLIMID [Suspect]
     Indication: MULTIPLE MYELOMA
     Dosage: 25 MG, ORAL; 15 MG, DAILY, ORAL; 10 MG, ORAL; 15 MG, ORAL
     Route: 048
     Dates: start: 20080108, end: 20080212
  3. REVLIMID [Suspect]
     Indication: MULTIPLE MYELOMA
     Dosage: 25 MG, ORAL; 15 MG, DAILY, ORAL; 10 MG, ORAL; 15 MG, ORAL
     Route: 048
     Dates: start: 20080212, end: 20080215
  4. REVLIMID [Suspect]
     Indication: MULTIPLE MYELOMA
     Dosage: 25 MG, ORAL; 15 MG, DAILY, ORAL; 10 MG, ORAL; 15 MG, ORAL
     Route: 048
     Dates: start: 20080215, end: 20080325
  5. DEXAMETHASONE [Concomitant]
  6. LISINOPRIL [Concomitant]
  7. SIMVASIN (SIMVASTATIN) [Concomitant]
  8. CORDARONE [Concomitant]
  9. MARCUMAR [Concomitant]
  10. BACTRIM [Concomitant]
  11. AREDIA [Concomitant]

REACTIONS (14)
  - APLASIA [None]
  - ASTHENIA [None]
  - ATRIAL FIBRILLATION [None]
  - BONE PAIN [None]
  - DISEASE PROGRESSION [None]
  - HYPERTENSION [None]
  - HYPOTENSION [None]
  - LEFT ATRIAL DILATATION [None]
  - NEUTROPENIA [None]
  - PANCYTOPENIA [None]
  - PARAPROTEINAEMIA [None]
  - PNEUMONIA [None]
  - PSEUDOMONAS INFECTION [None]
  - SLEEP DISORDER [None]
